FAERS Safety Report 10174797 (Version 1)
Quarter: 2014Q2

REPORT INFORMATION
  Report Type: Spontaneous
  Country: ES (occurrence: ES)
  Receive Date: 20140515
  Receipt Date: 20140515
  Transmission Date: 20141212
  Serious: Yes (Other)
  Sender: FDA-Public Use
  Company Number: ES-AMGEN INC.-ESPSP2014034208

PATIENT
  Age: 78 Year
  Sex: Male

DRUGS (1)
  1. PROLIA [Suspect]
     Indication: PRODUCT USED FOR UNKNOWN INDICATION
     Dosage: UNK
     Route: 065
     Dates: start: 20140206

REACTIONS (5)
  - Neutropenia [Unknown]
  - Diabetes mellitus [Unknown]
  - Hypoaesthesia [Unknown]
  - Osteoarthritis [Unknown]
  - Pain in extremity [Recovering/Resolving]
